FAERS Safety Report 17278016 (Version 1)
Quarter: 2020Q1

REPORT INFORMATION
  Report Type: Report from Study
  Country: DE (occurrence: DE)
  Receive Date: 20200116
  Receipt Date: 20200116
  Transmission Date: 20200409
  Serious: Yes (Hospitalization)
  Sender: FDA-Public Use
  Company Number: DE-MYLANLABS-2020M1004355

PATIENT
  Age: 60 Year
  Sex: Female
  Weight: 73 kg

DRUGS (8)
  1. AFLIBERCEPT [Suspect]
     Active Substance: AFLIBERCEPT
     Dosage: 300 MILLIGRAM, CYCLE (300 MG, QCY)
     Dates: start: 20191009, end: 20191009
  2. FLUOROURACIL. [Suspect]
     Active Substance: FLUOROURACIL
     Dosage: 5180 MILLIGRAM, CYCLE (5180 MG, QCY)
     Dates: start: 20191009, end: 20191009
  3. CALCIUM LEVOFOLINATE [Suspect]
     Active Substance: LEVOLEUCOVORIN CALCIUM
     Indication: COLORECTAL CANCER METASTATIC
     Dosage: 647 MILLIGRAM, CYCLE (647 MG, QCY)
     Dates: start: 20190814, end: 20190814
  4. AFLIBERCEPT [Suspect]
     Active Substance: AFLIBERCEPT
     Indication: COLORECTAL CANCER METASTATIC
     Dosage: 300 MILLIGRAM, CYCLE (300 MG, QCY)
     Dates: start: 20190814, end: 20190814
  5. OXALIPLATIN. [Suspect]
     Active Substance: OXALIPLATIN
     Dosage: 157.25 MILLIGRAM, CYCLE (157.25 MG, QCY)
     Dates: start: 20191009, end: 20191009
  6. FLUOROURACIL. [Suspect]
     Active Substance: FLUOROURACIL
     Indication: COLORECTAL CANCER METASTATIC
     Dosage: 5180 MILLIGRAM, CYCLE (5180 MG, QCY)
     Dates: start: 20190814, end: 20190814
  7. CALCIUM LEVOFOLINATE [Suspect]
     Active Substance: LEVOLEUCOVORIN CALCIUM
     Dosage: 647 MILLIGRAM, CYCLE (647 MG, QCY)
     Dates: start: 20191009, end: 20191009
  8. OXALIPLATIN. [Suspect]
     Active Substance: OXALIPLATIN
     Indication: COLORECTAL CANCER METASTATIC
     Dosage: 157.25 MILLIGRAM, CYCLE (157.25 MG, QCY)
     Dates: start: 20190814, end: 20190814

REACTIONS (1)
  - Embolism [Not Recovered/Not Resolved]

NARRATIVE: CASE EVENT DATE: 20190916
